FAERS Safety Report 5723814-4 (Version None)
Quarter: 2008Q2

REPORT INFORMATION
  Report Type: 
  Country: None (occurrence: None)
  Receive Date: 20080430
  Receipt Date: 20080424
  Transmission Date: 20081010
  Serious: Yes (Hospitalization)
  Sender: FDA-Public Use
  Company Number: AU-AVENTIS-200811835EU

PATIENT
  Age: 80 Year
  Sex: Female
  Weight: 70 kg

DRUGS (6)
  1. INDAPAMIDE [Suspect]
     Route: 048
  2. FLOXACILLIN SODIUM [Suspect]
     Indication: ARTHRITIS
     Dates: start: 20070825, end: 20070827
  3. ATORVASTATIN [Suspect]
     Route: 048
  4. RABEPRAZOLE SODIUM [Suspect]
     Route: 048
  5. RAMIPRIL [Suspect]
     Route: 048
  6. ASPIRIN [Suspect]
     Route: 048

REACTIONS (4)
  - ANURIA [None]
  - HYPOTENSION [None]
  - NEPHRITIS INTERSTITIAL [None]
  - RENAL FAILURE ACUTE [None]
